FAERS Safety Report 9235446 (Version 1)
Quarter: 2013Q1

REPORT INFORMATION
  Report Type: Spontaneous
  Country: US (occurrence: None)
  Receive Date: 20121031
  Receipt Date: 20121031
  Transmission Date: 20140127
  Serious: No
  Sender: FDA-Public Use
  Company Number: PHEH2012US011640

PATIENT
  Age: 51 Year
  Sex: Female

DRUGS (11)
  1. GILENYA (FTY) CAPSULE, 0.5MG [Suspect]
     Indication: MULTIPLE SCLEROSIS
     Route: 048
     Dates: start: 20120607, end: 20120618
  2. TOPAMAX (TOPIRAMATE) [Concomitant]
  3. FIORICET (BUTALBITAL, CAFFEINE PARACETAMOL) [Concomitant]
  4. CLONAZEPAM (CLONAZEPAM) [Concomitant]
  5. REGLAN (METOCLOPRAMIDE HYDROCHLORIDE) [Concomitant]
  6. OMEPRAZOLE (OMEPRAZOLE) [Concomitant]
  7. BACLOFEN (BACLOFEN) [Concomitant]
  8. LYRICA (PREGABALIN) [Concomitant]
  9. REQUIP (ROPINIROLE HYDROCHLORIDE) [Concomitant]
  10. ZANAFLEX (TIZANIDINE HYDROCHLORIDE) [Concomitant]
  11. LOPRESSOR (METOPROLOL TARTRATE) [Concomitant]

REACTIONS (4)
  - Vomiting [None]
  - Muscle spasms [None]
  - Pruritus [None]
  - Blood pressure increased [None]
